FAERS Safety Report 20683722 (Version 1)
Quarter: 2022Q2

REPORT INFORMATION
  Report Type: Report from Study
  Country: US (occurrence: US)
  Receive Date: 20220407
  Receipt Date: 20220407
  Transmission Date: 20220721
  Serious: No
  Sender: FDA-Public Use
  Company Number: US-Ipsen Biopharmaceuticals, Inc.-2022-09451

PATIENT
  Sex: Female

DRUGS (1)
  1. SOMATULINE DEPOT [Suspect]
     Active Substance: LANREOTIDE ACETATE
     Indication: Acromegaly
     Dosage: 120MG/0.5ML;
     Route: 058
     Dates: start: 2012

REACTIONS (3)
  - Injection site mass [Recovering/Resolving]
  - Arthralgia [Recovering/Resolving]
  - Insulin-like growth factor increased [Recovering/Resolving]
